FAERS Safety Report 18416036 (Version 1)
Quarter: 2020Q4

REPORT INFORMATION
  Report Type: Report from Study
  Country: CN (occurrence: CN)
  Receive Date: 20201022
  Receipt Date: 20201022
  Transmission Date: 20210114
  Serious: Yes (Other)
  Sender: FDA-Public Use
  Company Number: CN-ASTELLAS-2020US037130

PATIENT
  Age: 20 Year
  Sex: Female

DRUGS (2)
  1. FLUCONAZOLE. [Concomitant]
     Active Substance: FLUCONAZOLE
     Indication: TRICHOSPORON INFECTION
     Dosage: UNK, UNKNOWN FREQ.
     Route: 065
     Dates: start: 200004, end: 2000
  2. AMPHOTERICIN B, LIPOSOME [Suspect]
     Active Substance: AMPHOTERICIN B
     Indication: TRICHOSPORON INFECTION
     Dosage: UNK, UNKNOWN FREQ.
     Route: 065
     Dates: start: 200004, end: 2000

REACTIONS (1)
  - Drug ineffective [Not Recovered/Not Resolved]
